FAERS Safety Report 12801473 (Version 1)
Quarter: 2016Q4

REPORT INFORMATION
  Report Type: Spontaneous
  Country: US (occurrence: US)
  Receive Date: 20161003
  Receipt Date: 20161003
  Transmission Date: 20170207
  Serious: No
  Sender: FDA-Public Use
  Company Number: US-TEVA-694582USA

PATIENT
  Sex: Female
  Weight: 57.66 kg

DRUGS (2)
  1. PACLITAXEL. [Suspect]
     Active Substance: PACLITAXEL
     Indication: BREAST CANCER
  2. PACLITAXEL. [Suspect]
     Active Substance: PACLITAXEL

REACTIONS (1)
  - Paraesthesia [Not Recovered/Not Resolved]
